FAERS Safety Report 9681565 (Version 1)
Quarter: 2013Q4

REPORT INFORMATION
  Report Type: Spontaneous
  Country: US (occurrence: US)
  Receive Date: 20131111
  Receipt Date: 20131111
  Transmission Date: 20140711
  Serious: Yes (Other)
  Sender: FDA-Public Use
  Company Number: US-BAYER-2013-134546

PATIENT
  Age: 58 Year
  Sex: Female
  Weight: 86.17 kg

DRUGS (1)
  1. RID 1-2-3 SYSTEM [Suspect]
     Dosage: 1 TABLESPOON, QD
     Route: 048
     Dates: start: 201309, end: 201309

REACTIONS (19)
  - Choking sensation [Not Recovered/Not Resolved]
  - Cardiac disorder [None]
  - Delirium [Recovered/Resolved]
  - Poisoning [Not Recovered/Not Resolved]
  - Accidental exposure to product [Recovered/Resolved]
  - Paraesthesia [None]
  - Muscle spasms [Not Recovered/Not Resolved]
  - Vomiting [Recovered/Resolved]
  - Vomiting [Recovered/Resolved]
  - Rash [None]
  - Renal pain [Not Recovered/Not Resolved]
  - Eye colour change [Not Recovered/Not Resolved]
  - Productive cough [Not Recovered/Not Resolved]
  - Hyperhidrosis [Not Recovered/Not Resolved]
  - Tongue discolouration [Not Recovered/Not Resolved]
  - Disturbance in attention [Not Recovered/Not Resolved]
  - Chest pain [Unknown]
  - Dry mouth [Not Recovered/Not Resolved]
  - Skin ulcer [Not Recovered/Not Resolved]
